FAERS Safety Report 15159253 (Version 1)
Quarter: 2018Q3

REPORT INFORMATION
  Report Type: Spontaneous
  Country: FR (occurrence: FR)
  Receive Date: 20180718
  Receipt Date: 20180718
  Transmission Date: 20181010
  Serious: Yes (Other)
  Sender: FDA-Public Use
  Company Number: FR-JNJFOC-20180713967

PATIENT
  Age: 73 Year
  Sex: Male

DRUGS (1)
  1. ZYTIGA [Suspect]
     Active Substance: ABIRATERONE ACETATE
     Indication: PRODUCT USED FOR UNKNOWN INDICATION
     Route: 048
     Dates: start: 20180401

REACTIONS (3)
  - Ascites [Unknown]
  - Alanine aminotransferase increased [Unknown]
  - Aspartate aminotransferase increased [Unknown]

NARRATIVE: CASE EVENT DATE: 2018
